FAERS Safety Report 10487436 (Version 1)
Quarter: 2014Q4

REPORT INFORMATION
  Report Type: Spontaneous
  Country: US (occurrence: US)
  Receive Date: 20141001
  Receipt Date: 20141001
  Transmission Date: 20150528
  Serious: Yes (Hospitalization)
  Sender: FDA-Public Use
  Company Number: US-US-EMD SERONO, INC.-7324491

PATIENT
  Age: 36 Year
  Sex: Female

DRUGS (2)
  1. REBIF [Suspect]
     Active Substance: INTERFERON BETA-1A
     Indication: MULTIPLE SCLEROSIS
     Dates: start: 201408
  2. REBIF [Suspect]
     Active Substance: INTERFERON BETA-1A
     Dates: start: 201408, end: 201408

REACTIONS (4)
  - Multiple sclerosis relapse [Recovered/Resolved]
  - Liver disorder [Recovered/Resolved]
  - Hypersensitivity [Recovered/Resolved]
  - Contusion [Recovered/Resolved]

NARRATIVE: CASE EVENT DATE: 201408
